FAERS Safety Report 7607994-1 (Version None)
Quarter: 2011Q3

REPORT INFORMATION
  Report Type: 
  Country: None (occurrence: None)
  Receive Date: 20110714
  Receipt Date: 20110706
  Transmission Date: 20111222
  Serious: No
  Sender: FDA-Public Use
  Company Number: US-PFIZER INC-2011152987

PATIENT
  Sex: Female

DRUGS (4)
  1. XANAX [Suspect]
     Indication: ANXIETY
     Dosage: UNK
     Dates: start: 20110101
  2. RITALIN [Concomitant]
     Dosage: UNK
  3. XOPENEX [Suspect]
     Indication: MULTIPLE ALLERGIES
  4. XOPENEX [Suspect]
     Indication: ASTHMA
     Dosage: 45 UG, 1 PUFF
     Route: 055
     Dates: start: 20110101, end: 20110101

REACTIONS (6)
  - HEART RATE INCREASED [None]
  - DEPRESSION [None]
  - ASTHENIA [None]
  - HYPOAESTHESIA [None]
  - BLOOD PRESSURE INCREASED [None]
  - FLUSHING [None]
